FAERS Safety Report 10094327 (Version 2)
Quarter: 2014Q2

REPORT INFORMATION
  Report Type: Spontaneous
  Country: US (occurrence: US)
  Receive Date: 20140422
  Receipt Date: 20140422
  Transmission Date: 20141212
  Serious: Yes (Other)
  Sender: FDA-Public Use
  Company Number: US-BRISTOL-MYERS SQUIBB COMPANY-18984161

PATIENT
  Age: 75 Year
  Sex: Male

DRUGS (3)
  1. HYDREA [Suspect]
     Indication: MYELOFIBROSIS
     Route: 048
  2. ALLOPURINOL [Concomitant]
  3. ASPIRIN [Concomitant]

REACTIONS (1)
  - Squamous cell carcinoma [Unknown]
